FAERS Safety Report 6525084-6 (Version None)
Quarter: 2010Q1

REPORT INFORMATION
  Report Type: 
  Country: None (occurrence: None)
  Receive Date: 20100104
  Receipt Date: 20091225
  Transmission Date: 20100710
  Serious: Yes (Death)
  Sender: FDA-Public Use
  Company Number: TR-ROCHE-676931

PATIENT
  Sex: Male
  Weight: 73 kg

DRUGS (2)
  1. BEVACIZUMAB [Suspect]
     Indication: COLORECTAL CANCER
     Dosage: DOSAGE FORM: VIAL/600 100
     Route: 042
     Dates: start: 20080812
  2. CAPECITABINE [Suspect]
     Indication: COLORECTAL CANCER
     Dosage: FREQUENCY: DAILY FOR 1 DAYS
     Route: 048
     Dates: start: 20090812

REACTIONS (1)
  - DEATH [None]
